APPROVED DRUG PRODUCT: PREDAIR FORTE
Active Ingredient: PREDNISOLONE SODIUM PHOSPHATE
Strength: EQ 0.9% PHOSPHATE
Dosage Form/Route: SOLUTION/DROPS;OPHTHALMIC
Application: A088165 | Product #001
Applicant: PHARMAFAIR INC
Approved: Mar 28, 1983 | RLD: No | RS: No | Type: DISCN